FAERS Safety Report 9115782 (Version 1)
Quarter: 2013Q1

REPORT INFORMATION
  Report Type: Spontaneous
  Country: DE (occurrence: None)
  Receive Date: 20130129
  Receipt Date: 20130129
  Transmission Date: 20140127
  Serious: Yes (Other)
  Sender: FDA-Public Use
  Company Number: GER/GER/13/0027549

PATIENT
  Sex: Female

DRUGS (1)
  1. CIPROBETA [Suspect]
     Indication: URINARY TRACT INFECTION
     Route: 048

REACTIONS (7)
  - Candida infection [None]
  - Rhinorrhoea [None]
  - Dry skin [None]
  - Oral discomfort [None]
  - Burning sensation [None]
  - Erythema [None]
  - Histamine intolerance [None]
